FAERS Safety Report 20905720 (Version 1)
Quarter: 2022Q2

REPORT INFORMATION
  Report Type: Spontaneous
  Country: CN (occurrence: None)
  Receive Date: 20220602
  Receipt Date: 20220602
  Transmission Date: 20220721
  Serious: Yes (Other)
  Sender: FDA-Public Use
  Company Number: CN-ROCHE-3104462

PATIENT
  Age: 10 Month
  Sex: Male
  Weight: 10.5 kg

DRUGS (1)
  1. HEMLIBRA [Suspect]
     Active Substance: EMICIZUMAB-KXWH
     Indication: Factor VIII deficiency
     Dosage: VIA ABDOMEN (BOTH SIDES OF UMBILICUS) (UNSPECIFIED)
     Route: 065
     Dates: start: 20220503

REACTIONS (3)
  - Hypersensitivity [Not Recovered/Not Resolved]
  - Erythema [Recovering/Resolving]
  - Skin warm [Recovering/Resolving]

NARRATIVE: CASE EVENT DATE: 20220513
